FAERS Safety Report 4993024-7 (Version None)
Quarter: 2006Q2

REPORT INFORMATION
  Report Type: 
  Country: None (occurrence: None)
  Receive Date: 20060504
  Receipt Date: 20041108
  Transmission Date: 20061013
  Serious: Yes (Hospitalization)
  Sender: FDA-Public Use
  Company Number: US-MERCK-0411USA01462

PATIENT
  Age: 42 Year
  Sex: Male
  Weight: 102 kg

DRUGS (20)
  1. VIOXX [Suspect]
     Indication: OSTEOARTHRITIS
     Route: 048
     Dates: start: 20001222, end: 20040729
  2. VIOXX [Suspect]
     Route: 048
     Dates: start: 20001222, end: 20040729
  3. LORTAB [Concomitant]
     Route: 065
  4. XANAX [Concomitant]
     Route: 065
  5. OXYCONTIN [Concomitant]
     Route: 065
  6. STADOL [Concomitant]
     Route: 065
  7. PERCOCET [Concomitant]
     Route: 065
  8. FOLIC ACID [Concomitant]
     Route: 065
  9. HYDROCODONE BITARTRATE [Concomitant]
     Route: 065
  10. PROPRANOLOL HYDROCHLORIDE [Concomitant]
     Route: 065
  11. INDERAL [Concomitant]
     Route: 065
  12. ZOLOFT [Concomitant]
     Route: 065
  13. CALCIUM (UNSPECIFIED) [Concomitant]
     Route: 065
  14. KLONOPIN [Concomitant]
     Route: 065
  15. VITAMINS (UNSPECIFIED) [Concomitant]
     Route: 065
  16. OXYIR [Concomitant]
     Route: 065
  17. METHADONE HCL [Concomitant]
     Route: 065
  18. PREVACID [Concomitant]
     Route: 065
  19. VIOXX [Suspect]
     Indication: ARTHRITIS
     Route: 048
     Dates: start: 20001222, end: 20040729
  20. VIOXX [Suspect]
     Route: 048
     Dates: start: 20001222, end: 20040729

REACTIONS (5)
  - ARTHROPATHY [None]
  - HYPERCHOLESTEROLAEMIA [None]
  - HYPERTENSION [None]
  - MYOCARDIAL INFARCTION [None]
  - RADICULITIS LUMBOSACRAL [None]
